FAERS Safety Report 10413517 (Version 1)
Quarter: 2014Q2

REPORT INFORMATION
  Report Type: Spontaneous
  Country: US (occurrence: None)
  Receive Date: 20140530
  Receipt Date: 20140530
  Transmission Date: 20141212
  Serious: No
  Sender: FDA-Public Use
  Company Number: 226565

PATIENT
  Age: 71 Year
  Sex: Male

DRUGS (2)
  1. PICATO (INGENOL MEBUTATE) (0.05 %, GEL) [Suspect]
     Indication: ACTINIC KERATOSIS
     Dates: start: 20140213, end: 20140215
  2. ARMOUR THYROID (THYROID) [Concomitant]

REACTIONS (3)
  - Application site warmth [None]
  - Application site reaction [None]
  - Skin tightness [None]
